FAERS Safety Report 8375098-9 (Version None)
Quarter: 2012Q2

REPORT INFORMATION
  Report Type: 
  Country: None (occurrence: None)
  Receive Date: 20120521
  Receipt Date: 20120509
  Transmission Date: 20120825
  Serious: Yes (Hospitalization)
  Sender: FDA-Public Use
  Company Number: US-BAXTER-2012BAX004754

PATIENT
  Sex: Female

DRUGS (2)
  1. EXTRANEAL [Suspect]
     Route: 033
     Dates: start: 20110202
  2. DIANEAL [Suspect]
     Route: 033
     Dates: start: 20110202

REACTIONS (1)
  - GASTROINTESTINAL HAEMORRHAGE [None]
